FAERS Safety Report 19208815 (Version 3)
Quarter: 2021Q2

REPORT INFORMATION
  Report Type: Spontaneous
  Country: FR (occurrence: FR)
  Receive Date: 20210504
  Receipt Date: 20210616
  Transmission Date: 20210717
  Serious: Yes (Hospitalization, Other)
  Sender: FDA-Public Use
  Company Number: FR-ABBVIE-21K-056-3779963-00

PATIENT
  Age: 74 Year
  Sex: Male
  Weight: 80 kg

DRUGS (14)
  1. RINVOQ [Suspect]
     Active Substance: UPADACITINIB
     Indication: POLYARTHRITIS
     Route: 048
     Dates: start: 20201209, end: 2021
  2. RINVOQ [Suspect]
     Active Substance: UPADACITINIB
     Indication: RHEUMATOID ARTHRITIS
     Dosage: 1 TABLET
     Route: 048
     Dates: start: 2021, end: 20210224
  3. PREDNISOLONE. [Suspect]
     Active Substance: PREDNISOLONE
     Indication: ANTIINFLAMMATORY THERAPY
     Route: 048
     Dates: start: 19800101
  4. PREGABALIN. [Concomitant]
     Active Substance: PREGABALIN
     Indication: SEIZURE PROPHYLAXIS
     Dosage: PREGABALIN 100
     Dates: start: 20210308
  5. ZYMAD [Suspect]
     Active Substance: CHOLECALCIFEROL
     Indication: PRODUCT USED FOR UNKNOWN INDICATION
     Route: 065
  6. PREDNISONE. [Concomitant]
     Active Substance: PREDNISONE
     Dosage: 2 TABLET
     Dates: start: 20210318
  7. PARACETAMOL [Concomitant]
     Active Substance: ACETAMINOPHEN
     Indication: PAIN
     Dosage: PARACETAMOL 1000, 3 TIMES PER DAY IF PAIN
     Dates: start: 20210308
  8. CODOLIPRANE [Concomitant]
     Active Substance: ACETAMINOPHEN\CODEINE PHOSPHATE
     Indication: PAIN
     Dosage: 500 BY 30, MORNING, NOON AND EVENING
     Dates: start: 20210408
  9. ESOMEPRAZOLE. [Concomitant]
     Active Substance: ESOMEPRAZOLE MAGNESIUM
     Indication: DYSPEPSIA
  10. PREDNISONE. [Concomitant]
     Active Substance: PREDNISONE
     Indication: ANTIINFLAMMATORY THERAPY
     Dates: start: 20201207
  11. ZOVIRAX [Concomitant]
     Active Substance: ACYCLOVIR
     Indication: PRODUCT USED FOR UNKNOWN INDICATION
     Dosage: ZOVIRAX 500. 800 MG PER 8 HOURS
     Route: 042
     Dates: start: 20210308
  12. PREGABALIN. [Concomitant]
     Active Substance: PREGABALIN
     Indication: ANXIOLYTIC THERAPY
  13. PARACETAMOL [Concomitant]
     Active Substance: ACETAMINOPHEN
     Indication: PAIN
     Dosage: PARACETAMOL 500
  14. PREGABALIN. [Concomitant]
     Active Substance: PREGABALIN
     Indication: PRODUCT USED FOR UNKNOWN INDICATION
     Dosage: PREGABALIN 25, AT NOON
     Dates: start: 20210308

REACTIONS (19)
  - Pain [Unknown]
  - Hypoaesthesia [Not Recovered/Not Resolved]
  - Unevaluable event [Unknown]
  - Joint range of motion decreased [Not Recovered/Not Resolved]
  - Musculoskeletal disorder [Not Recovered/Not Resolved]
  - Off label use [Unknown]
  - Fatigue [Not Recovered/Not Resolved]
  - Sensitive skin [Not Recovered/Not Resolved]
  - Oedema peripheral [Recovered/Resolved]
  - Gingival pain [Unknown]
  - Exercise tolerance decreased [Unknown]
  - Burning sensation [Not Recovered/Not Resolved]
  - Paraesthesia [Not Recovered/Not Resolved]
  - Arthralgia [Not Recovered/Not Resolved]
  - Pruritus [Not Recovered/Not Resolved]
  - Sensory disturbance [Recovering/Resolving]
  - Meningitis [Unknown]
  - Viral myelitis [Recovered/Resolved]
  - Hyperaesthesia [Not Recovered/Not Resolved]

NARRATIVE: CASE EVENT DATE: 2021
